FAERS Safety Report 6000281-7 (Version None)
Quarter: 2008Q4

REPORT INFORMATION
  Report Type: 
  Country: None (occurrence: None)
  Receive Date: 20081215
  Receipt Date: 20081209
  Transmission Date: 20090506
  Serious: Yes (Other)
  Sender: FDA-Public Use
  Company Number: BR-ELI_LILLY_AND_COMPANY-BR200812002399

PATIENT
  Sex: Male

DRUGS (1)
  1. CIALIS [Suspect]
     Dosage: UNK, WEEKLY (1/W)
     Route: 065
     Dates: start: 20060101

REACTIONS (1)
  - TRANSIENT ISCHAEMIC ATTACK [None]
